FAERS Safety Report 7070122-8 (Version None)
Quarter: 2010Q4

REPORT INFORMATION
  Report Type: 
  Country: None (occurrence: None)
  Receive Date: 20101028
  Receipt Date: 20101015
  Transmission Date: 20110411
  Serious: No
  Sender: FDA-Public Use
  Company Number: US-WYE-H17347910

PATIENT
  Age: 30 Year
  Sex: Female
  Weight: 81.72 kg

DRUGS (3)
  1. ADVIL [Suspect]
     Indication: HEADACHE
     Dosage: 1-2 LIQUI-GELS AS NEEDED
     Route: 048
     Dates: start: 20100901, end: 20100901
  2. ADVIL [Suspect]
     Indication: NECK PAIN
  3. ADVIL [Suspect]
     Indication: BACK PAIN

REACTIONS (3)
  - CAPSULE ISSUE [None]
  - PRODUCT CONTAINER ISSUE [None]
  - VISUAL IMPAIRMENT [None]
